FAERS Safety Report 16397851 (Version 1)
Quarter: 2019Q2

REPORT INFORMATION
  Report Type: Spontaneous
  Country: US (occurrence: US)
  Receive Date: 20190430
  Receipt Date: 20190430
  Transmission Date: 20190711
  Serious: Yes (Hospitalization)
  Sender: FDA-Public Use
  Company Number: None

PATIENT
  Age: 65 Year
  Sex: Female
  Weight: 107.5 kg

DRUGS (2)
  1. GEMCITABINE HYDROCHLORIDE. [Suspect]
     Active Substance: GEMCITABINE HYDROCHLORIDE
     Dates: end: 20190415
  2. CISPLATIN. [Suspect]
     Active Substance: CISPLATIN
     Dates: end: 20190415

REACTIONS (2)
  - Hypomagnesaemia [None]
  - Pyrexia [None]

NARRATIVE: CASE EVENT DATE: 20190422
